FAERS Safety Report 8803749 (Version 1)
Quarter: 2012Q4

REPORT INFORMATION
  Report Type: Report from Study
  Country: CA (occurrence: CA)
  Receive Date: 20120924
  Receipt Date: 20120924
  Transmission Date: 20130627
  Serious: Yes (Other)
  Sender: FDA-Public Use
  Company Number: CA-JNJFOC-20120906410

PATIENT
  Age: 28 Year
  Sex: Female
  Weight: 89 kg

DRUGS (4)
  1. REMICADE [Suspect]
     Indication: COLITIS ULCERATIVE
     Route: 042
     Dates: start: 200912
  2. DEPO PROVERA [Concomitant]
     Route: 065
  3. MECLIZINE [Concomitant]
     Route: 065
  4. AERIUS [Concomitant]
     Route: 065

REACTIONS (2)
  - Inner ear disorder [Recovering/Resolving]
  - Cough [Unknown]
